FAERS Safety Report 8462872-3 (Version None)
Quarter: 2012Q2

REPORT INFORMATION
  Report Type: 
  Country: None (occurrence: None)
  Receive Date: 20120625
  Receipt Date: 20120621
  Transmission Date: 20120825
  Serious: Yes (Death, Life-Threatening, Hospitalization)
  Sender: FDA-Public Use
  Company Number: DE-ASTRAZENECA-2011SE00410

PATIENT
  Age: 72 Year
  Sex: Female
  Weight: 100 kg

DRUGS (8)
  1. ARIMIDEX [Suspect]
     Indication: BREAST CANCER
     Route: 048
     Dates: start: 20100904
  2. TORSEMIDE [Concomitant]
     Indication: CORONARY ARTERY DISEASE
     Route: 050
  3. SIMVASTATIN [Concomitant]
     Indication: HYPERCHOLESTEROLAEMIA
     Route: 050
  4. PANTOPRAZOLE [Concomitant]
     Indication: GASTRITIS PROPHYLAXIS
     Route: 050
  5. RAMIPRIL [Concomitant]
     Indication: BLOOD PRESSURE
     Route: 050
  6. BISOPROLOL [Concomitant]
     Indication: BLOOD PRESSURE
     Route: 050
  7. ASPIRIN [Concomitant]
     Route: 050
  8. LEVOTHYROXINE SODIUM [Concomitant]
     Indication: THYROID DISORDER
     Route: 050

REACTIONS (2)
  - IATROGENIC INJURY [None]
  - MULTI-ORGAN FAILURE [None]
